FAERS Safety Report 7753937-X (Version None)
Quarter: 2011Q3

REPORT INFORMATION
  Report Type: 
  Country: None (occurrence: None)
  Receive Date: 20110915
  Receipt Date: 20110906
  Transmission Date: 20111222
  Serious: Yes (Hospitalization, Other)
  Sender: FDA-Public Use
  Company Number: US-BAYER-2011-013526

PATIENT
  Sex: Female
  Weight: 57.143 kg

DRUGS (6)
  1. YASMIN [Suspect]
     Indication: CONTRACEPTION
     Dosage: UNK
     Dates: start: 20060901, end: 20070501
  2. AMOXICILLIN [Concomitant]
     Dosage: 500 MG, TID
     Route: 048
  3. YASMIN [Suspect]
     Indication: ACNE
     Dosage: UNK
     Dates: start: 20050201, end: 20050601
  4. NSAID'S [Concomitant]
  5. NEXIUM [Concomitant]
     Dosage: 40 MG, QD
     Route: 048
  6. ACETAMINOPHEN AND HYDROCODONE BITARTRATE [Concomitant]
     Indication: PAIN
     Dosage: 7.5/500 MG, ONE TO TWO, EVERY 4 HOURS AS NEEDED
     Route: 048

REACTIONS (4)
  - CHOLECYSTITIS [None]
  - CHOLECYSTITIS CHRONIC [None]
  - CHOLELITHIASIS [None]
  - PAIN [None]
